FAERS Safety Report 24456660 (Version 1)
Quarter: 2024Q4

REPORT INFORMATION
  Report Type: Report from Study
  Country: JP (occurrence: JP)
  Receive Date: 20241017
  Receipt Date: 20241017
  Transmission Date: 20250115
  Serious: Yes (Hospitalization)
  Sender: ABBVIE
  Company Number: JP-ABBVIE-5966214

PATIENT
  Age: 56 Year
  Sex: Male
  Weight: 55 kg

DRUGS (1)
  1. RISANKIZUMAB [Suspect]
     Active Substance: RISANKIZUMAB
     Indication: Crohn^s disease
     Route: 042
     Dates: start: 20240402, end: 20240528

REACTIONS (1)
  - Varices oesophageal [Recovered/Resolved]

NARRATIVE: CASE EVENT DATE: 20240919
